FAERS Safety Report 21823292 (Version 1)
Quarter: 2023Q1

REPORT INFORMATION
  Report Type: Report from Study
  Country: PL (occurrence: PL)
  Receive Date: 20230105
  Receipt Date: 20230105
  Transmission Date: 20230418
  Serious: Yes (Other)
  Sender: FDA-Public Use
  Company Number: PL-ROCHE-3253990

PATIENT
  Age: 74 Year
  Sex: Male
  Weight: 81 kg

DRUGS (14)
  1. CARBOPLATIN [Suspect]
     Active Substance: CARBOPLATIN
     Indication: Lung cancer metastatic
     Dosage: 419 MG
     Route: 065
     Dates: start: 20210722
  2. ETOPOSIDE [Suspect]
     Active Substance: ETOPOSIDE
     Indication: Lung cancer metastatic
     Dosage: 180 MG
     Route: 042
     Dates: start: 20210722
  3. ATEZOLIZUMAB [Suspect]
     Active Substance: ATEZOLIZUMAB
     Indication: Lung cancer metastatic
     Dosage: ON 26AUG2022, MOST RECENT DOSE OF ATEZOLIZUMAB, PRIOR TO ADVERSE EVENT WAS 1200 MG
     Route: 042
     Dates: start: 20210722
  4. HERBAL DRUGS USED IN BENIGN PROSTATIC HYPERTROPHY [Concomitant]
     Dosage: UNK, 1X/DAY
  5. TEGRETOL [Concomitant]
     Active Substance: CARBAMAZEPINE
     Dosage: UNK, 2X/DAY
  6. AMLODIPINE BESYLATE [Concomitant]
     Active Substance: AMLODIPINE BESYLATE
     Dosage: UNK, 1X/DAY
  7. ZOFRAN [Concomitant]
     Active Substance: ONDANSETRON HYDROCHLORIDE
  8. PANTOPRAZOLE SODIUM [Concomitant]
     Active Substance: PANTOPRAZOLE SODIUM
     Dosage: UNK, 1X/DAY
  9. CLEMASTINUM [CLEMASTINE] [Concomitant]
     Dosage: UNK, 1X/DAY
     Dates: start: 20211215
  10. MOMETASONE FUROATE [Concomitant]
     Active Substance: MOMETASONE FUROATE
     Dosage: UNK, 1X/DAY
     Dates: start: 20211215
  11. LACTULOSE [Concomitant]
     Active Substance: LACTULOSE
  12. ATEZOLIZUMAB [Concomitant]
     Active Substance: ATEZOLIZUMAB
     Dosage: UNK
  13. HYPLAFIN [Concomitant]
     Dosage: UNK, 1X/DAY
  14. RAMIPRIL [Concomitant]
     Active Substance: RAMIPRIL
     Dosage: UNK, 1X/DAY

REACTIONS (1)
  - Pneumonia [Recovered/Resolved]

NARRATIVE: CASE EVENT DATE: 20220913
